FAERS Safety Report 20406715 (Version 1)
Quarter: 2022Q1

REPORT INFORMATION
  Report Type: Report from Study
  Country: US (occurrence: US)
  Receive Date: 20220131
  Receipt Date: 20220131
  Transmission Date: 20220423
  Serious: Yes (Other)
  Sender: FDA-Public Use
  Company Number: US-TAKEDA-2021TUS068098

PATIENT
  Sex: Male

DRUGS (4)
  1. TEDUGLUTIDE [Suspect]
     Active Substance: TEDUGLUTIDE
     Indication: Short-bowel syndrome
     Dosage: 3.08 MILLIGRAM, QD
     Route: 058
     Dates: start: 202109
  2. TEDUGLUTIDE [Suspect]
     Active Substance: TEDUGLUTIDE
     Indication: Short-bowel syndrome
     Dosage: 3.08 MILLIGRAM, QD
     Route: 058
     Dates: start: 202109
  3. TEDUGLUTIDE [Suspect]
     Active Substance: TEDUGLUTIDE
     Indication: Short-bowel syndrome
     Dosage: 3.08 MILLIGRAM, QD
     Route: 058
     Dates: start: 202109
  4. TEDUGLUTIDE [Suspect]
     Active Substance: TEDUGLUTIDE
     Indication: Short-bowel syndrome
     Dosage: 3.08 MILLIGRAM, QD
     Route: 058
     Dates: start: 202109

REACTIONS (4)
  - Gastrointestinal anastomotic leak [Unknown]
  - Gastrointestinal anastomotic complication [Unknown]
  - Abdominal pain [Unknown]
  - Product dose omission issue [Unknown]
